FAERS Safety Report 7941110-1 (Version None)
Quarter: 2011Q4

REPORT INFORMATION
  Report Type: 
  Country: None (occurrence: None)
  Receive Date: 20111122
  Receipt Date: 20111114
  Transmission Date: 20120403
  Serious: Yes (Hospitalization, Other)
  Sender: FDA-Public Use
  Company Number: AUR-APL-2011-05472

PATIENT
  Age: 23 Year
  Sex: Female
  Weight: 68 kg

DRUGS (6)
  1. PREDNISOLONE [Suspect]
  2. FALITHROM (PHENPROCOUMON) [Suspect]
     Indication: PULMONARY EMBOLISM
     Dosage: 6 MG (3 MG, 2 IN 1 D), ORAL
     Route: 048
     Dates: start: 20091031, end: 20110113
  3. CYCLOSPORINE [Suspect]
     Indication: GLOMERULONEPHRITIS
     Dosage: 300 MG (150 MG, 2  IN 1 D), ORAL
     Route: 048
     Dates: start: 20091031, end: 20110113
  4. TORSEMIDE [Suspect]
     Indication: GLOMERULONEPHRITIS MEMBRANOUS
     Dosage: 10 MG, 1 D, ORAL
     Route: 048
     Dates: start: 20101031, end: 20110126
  5. ENOXAPARIN SODIUM [Suspect]
  6. RAMIPRIL [Suspect]
     Indication: GLOMERULONEPHRITIS
     Dosage: 5 MG,1 D, ORAL
     Route: 048
     Dates: start: 20101031, end: 20110126

REACTIONS (3)
  - PULMONARY EMBOLISM [None]
  - MATERNAL EXPOSURE DURING PREGNANCY [None]
  - DEEP VEIN THROMBOSIS [None]
